FAERS Safety Report 7780666-9 (Version None)
Quarter: 2011Q3

REPORT INFORMATION
  Report Type: 
  Country: None (occurrence: None)
  Receive Date: 20110927
  Receipt Date: 20110317
  Transmission Date: 20111222
  Serious: No
  Sender: FDA-Public Use
  Company Number: US-BRISTOL-MYERS SQUIBB COMPANY-15583560

PATIENT
  Age: 78 Year
  Sex: Female

DRUGS (5)
  1. VITAMIN B-12 [Concomitant]
  2. RESTASIS [Concomitant]
  3. AVAPRO [Suspect]
     Indication: HYPERTENSION
     Route: 048
     Dates: start: 20090401
  4. HYDROCHLOROTHIAZIDE [Concomitant]
  5. LUMIGAN [Concomitant]
     Dosage: FORMULATION:EYEDROPS

REACTIONS (1)
  - DYSGEUSIA [None]
